FAERS Safety Report 14128032 (Version 3)
Quarter: 2017Q4

REPORT INFORMATION
  Report Type: Spontaneous
  Country: US (occurrence: US)
  Receive Date: 20171026
  Receipt Date: 20171208
  Transmission Date: 20180321
  Serious: No
  Sender: FDA-Public Use
  Company Number: US-PFIZER INC-2017461587

PATIENT
  Age: 66 Year
  Sex: Female
  Weight: 74.39 kg

DRUGS (9)
  1. GABAPENTIN. [Concomitant]
     Active Substance: GABAPENTIN
     Indication: NEUROPATHY PERIPHERAL
     Dosage: 300 MG, THREE TIMES A DAY (3 CAPSULES: 900MG)
     Route: 048
  2. FENTANYL. [Concomitant]
     Active Substance: FENTANYL
     Indication: PAIN
     Dosage: 50 UG, (ONE PATCH EVERY 72 HOURS)
  3. PROPRANOLOL [Concomitant]
     Active Substance: PROPRANOLOL HYDROCHLORIDE
     Dosage: 10MG (ONE TABLET 3 TIMES A DAY)
     Route: 048
  4. LYRICA [Suspect]
     Active Substance: PREGABALIN
     Indication: NEUROPATHY PERIPHERAL
  5. GABAPENTIN. [Concomitant]
     Active Substance: GABAPENTIN
     Indication: ANXIETY
  6. XANAX [Concomitant]
     Active Substance: ALPRAZOLAM
     Indication: ANXIETY
     Dosage: 0.5 MG (1/2 TABLET IN THE MORNING AND 2 TABLETS AT BEDTIME AND CAN TAKE A 1/2 TABLET)
  7. LYRICA [Suspect]
     Active Substance: PREGABALIN
     Indication: CRYOGLOBULINAEMIA
     Dosage: 75 MG, 3X/DAY
     Route: 048
     Dates: start: 201709
  8. NEXIUM [Concomitant]
     Active Substance: ESOMEPRAZOLE MAGNESIUM
     Indication: GASTROOESOPHAGEAL REFLUX DISEASE
     Dosage: 40 MG, 1X/DAY
     Route: 048
  9. FUROSEMIDE. [Concomitant]
     Active Substance: FUROSEMIDE
     Indication: OEDEMA
     Dosage: 40 MG, AS NEEDED
     Route: 048

REACTIONS (2)
  - Somnolence [Not Recovered/Not Resolved]
  - Breakthrough pain [Unknown]

NARRATIVE: CASE EVENT DATE: 201709
